FAERS Safety Report 11614934 (Version 1)
Quarter: 2015Q4

REPORT INFORMATION
  Report Type: Spontaneous
  Country: AU (occurrence: AU)
  Receive Date: 20151009
  Receipt Date: 20151009
  Transmission Date: 20160304
  Serious: Yes (Death)
  Sender: FDA-Public Use
  Company Number: AU-FRESENIUS KABI-FK201504762

PATIENT
  Age: 33 Year
  Sex: Male

DRUGS (1)
  1. METHYLPREDNISOLONE (MANUFACTURER UNKNOWN) [Suspect]
     Active Substance: METHYLPREDNISOLONE
     Indication: IMMUNOSUPPRESSION
     Route: 042

REACTIONS (3)
  - Lung disorder [Fatal]
  - Lung infection [Fatal]
  - Obliterative bronchiolitis [Fatal]
